FAERS Safety Report 17984295 (Version 2)
Quarter: 2020Q3

REPORT INFORMATION
  Report Type: Spontaneous
  Country: PL (occurrence: PL)
  Receive Date: 20200706
  Receipt Date: 20200730
  Transmission Date: 20201103
  Serious: Yes (Hospitalization, Other)
  Sender: FDA-Public Use
  Company Number: PL-ASTELLAS-2020US022426

PATIENT
  Age: 42 Year
  Sex: Female

DRUGS (10)
  1. ADVAGRAF [Suspect]
     Active Substance: TACROLIMUS
     Dosage: UNK, UNKNOWN FREQ. (DOSE REDUCED)
     Route: 065
     Dates: start: 201810, end: 2019
  2. EVEROLIMUS. [Suspect]
     Active Substance: EVEROLIMUS
     Indication: ANTIVIRAL PROPHYLAXIS
  3. ADVAGRAF [Suspect]
     Active Substance: TACROLIMUS
     Dosage: UNK, UNKNOWN FREQ. (DOSE DECREASED)
     Route: 065
     Dates: start: 2019
  4. PREDNISONE. [Suspect]
     Active Substance: PREDNISONE
     Indication: RENAL AND PANCREAS TRANSPLANT
     Dosage: UNK UNK, UNKNOWN FREQ.
     Route: 065
     Dates: start: 201712
  5. ADVAGRAF [Suspect]
     Active Substance: TACROLIMUS
     Indication: RENAL AND PANCREAS TRANSPLANT
     Dosage: UNK UNK, UNKNOWN FREQ.
     Route: 065
     Dates: start: 201712, end: 2018
  6. ADVAGRAF [Suspect]
     Active Substance: TACROLIMUS
     Dosage: DOSE DECREASE FROM 7 TO 2 MG BETWEEN APR AND AUG 2019, ONCE DAILY
     Route: 065
     Dates: start: 2019, end: 2019
  7. EVEROLIMUS. [Suspect]
     Active Substance: EVEROLIMUS
     Indication: TRANSPLANT REJECTION
     Dosage: UNK UNK, UNKNOWN FREQ. (LOW DOSE)
     Dates: start: 201901, end: 201909
  8. PREDNISONE. [Suspect]
     Active Substance: PREDNISONE
     Route: 065
     Dates: start: 201810
  9. MYCOPHENOLATE MOFETIL. [Concomitant]
     Active Substance: MYCOPHENOLATE MOFETIL
     Indication: RENAL AND PANCREAS TRANSPLANT
     Dosage: UNK UNK, UNKNOWN FREQ.
     Route: 065
     Dates: start: 201712, end: 201808
  10. THYMOGLOBULIN [Concomitant]
     Active Substance: LAPINE T-LYMPHOCYTE IMMUNE GLOBULIN
     Indication: RENAL AND PANCREAS TRANSPLANT
     Dosage: UNK UNK, UNKNOWN FREQ.
     Route: 065
     Dates: start: 201712

REACTIONS (11)
  - Herpes zoster [Recovering/Resolving]
  - Pneumonia [Recovering/Resolving]
  - Normocytic anaemia [Recovered/Resolved]
  - Wound infection [Recovering/Resolving]
  - Respiratory tract infection fungal [Recovering/Resolving]
  - Tinea infection [Recovering/Resolving]
  - Escherichia urinary tract infection [Recovering/Resolving]
  - Respiratory moniliasis [Recovering/Resolving]
  - Parvovirus B19 infection [Not Recovered/Not Resolved]
  - Aplasia pure red cell [Recovering/Resolving]
  - Immunosuppressant drug level increased [Unknown]

NARRATIVE: CASE EVENT DATE: 201808
